FAERS Safety Report 5055507-3 (Version None)
Quarter: 2006Q3

REPORT INFORMATION
  Report Type: 
  Country: None (occurrence: None)
  Receive Date: 20060717
  Receipt Date: 20060717
  Transmission Date: 20061208
  Serious: Yes (Other)
  Sender: FDA-Public Use
  Company Number: None

PATIENT
  Sex: Female
  Weight: 63.05 kg

DRUGS (11)
  1. CARBIDOPA/LEVODOPA 25/100 EXTENDED RELEASE [Suspect]
     Indication: RESTLESS LEGS SYNDROME
     Dosage: ONE AT HS
     Dates: start: 20060622, end: 20060625
  2. NEURONTIN [Concomitant]
  3. DILANTIN [Concomitant]
  4. CLONIDINE [Concomitant]
  5. XANAX [Concomitant]
  6. ZOLOFT [Concomitant]
  7. TOPROL-XL [Concomitant]
  8. LISINOPRIL [Concomitant]
  9. AZMACORT [Concomitant]
  10. ALBUTEROL SPIROS [Concomitant]
  11. PREMPRO [Concomitant]

REACTIONS (4)
  - BLOOD PRESSURE INCREASED [None]
  - HEART RATE INCREASED [None]
  - MUSCLE SPASMS [None]
  - TREMOR [None]
